FAERS Safety Report 7474241-3 (Version None)
Quarter: 2011Q2

REPORT INFORMATION
  Report Type: 
  Country: None (occurrence: None)
  Receive Date: 20110511
  Receipt Date: 20110505
  Transmission Date: 20111010
  Serious: Yes (Hospitalization)
  Sender: FDA-Public Use
  Company Number: ZA-GILEAD-2011-0039155

PATIENT
  Sex: Female
  Weight: 82 kg

DRUGS (5)
  1. DEPO-PROVERA [Concomitant]
     Indication: CONTRACEPTION
     Dates: start: 20100601
  2. NORDETTE-21 [Concomitant]
     Indication: CONTRACEPTION
  3. NORETHISTERONE ENANTATE [Concomitant]
     Indication: CONTRACEPTION
     Dates: start: 20100310
  4. OVRAL [Concomitant]
     Indication: CONTRACEPTION
     Dates: start: 20100501
  5. TENOFOVIR DISOPROXIL FUMARATE [Suspect]
     Indication: PROPHYLAXIS AGAINST HIV INFECTION
     Route: 067
     Dates: start: 20110406

REACTIONS (1)
  - METRORRHAGIA [None]
